FAERS Safety Report 4502835-3 (Version None)
Quarter: 2004Q4

REPORT INFORMATION
  Report Type: 
  Country: None (occurrence: None)
  Receive Date: 20041112
  Receipt Date: 20041101
  Transmission Date: 20050328
  Serious: Yes (Hospitalization)
  Sender: FDA-Public Use
  Company Number: 04H-163-0279597-00

PATIENT
  Age: 36 Year
  Sex: Female

DRUGS (3)
  1. SORBITOL-MANNITOL [Suspect]
     Indication: PREOPERATIVE CARE
  2. SODIUM CHLIRODE COMPOUND INJECTION [Concomitant]
  3. SODIUM CHLORIDE 0.9% [Concomitant]

REACTIONS (5)
  - FLUID IMBALANCE [None]
  - HYPOKALAEMIA [None]
  - HYPONATRAEMIA [None]
  - PROCEDURAL COMPLICATION [None]
  - PULMONARY OEDEMA [None]
